FAERS Safety Report 6055665-8 (Version None)
Quarter: 2009Q1

REPORT INFORMATION
  Report Type: 
  Country: None (occurrence: None)
  Receive Date: 20090128
  Receipt Date: 20090116
  Transmission Date: 20090719
  Serious: Yes (Other)
  Sender: FDA-Public Use
  Company Number: US-PFIZER INC-2009157188

PATIENT
  Sex: Female
  Weight: 68.027 kg

DRUGS (2)
  1. LYRICA [Suspect]
     Indication: NEUROPATHY PERIPHERAL
     Dates: start: 20080601, end: 20080101
  2. NEURONTIN [Concomitant]
     Dosage: UNK

REACTIONS (6)
  - BODY HEIGHT DECREASED [None]
  - FRACTURE [None]
  - RIB FRACTURE [None]
  - ROAD TRAFFIC ACCIDENT [None]
  - SOMNOLENCE [None]
  - SPINAL FRACTURE [None]
